FAERS Safety Report 7371756-3 (Version None)
Quarter: 2011Q1

REPORT INFORMATION
  Report Type: 
  Country: None (occurrence: None)
  Receive Date: 20110324
  Receipt Date: 20110322
  Transmission Date: 20110831
  Serious: Yes (Death)
  Sender: FDA-Public Use
  Company Number: PHHY2010US72560

PATIENT
  Sex: Female
  Weight: 44.444 kg

DRUGS (6)
  1. EXJADE [Suspect]
     Indication: SICKLE CELL ANAEMIA
     Dosage: 1000 MG, QD
     Route: 048
     Dates: start: 20100618
  2. GLIPIZIDE [Concomitant]
  3. JANUMET [Concomitant]
  4. FLUTICASONE PROPIONATE [Concomitant]
  5. MULTIVITAMIN [Concomitant]
  6. INSULIN [Concomitant]

REACTIONS (1)
  - DEATH [None]
